FAERS Safety Report 6282735-1 (Version None)
Quarter: 2009Q3

REPORT INFORMATION
  Report Type: 
  Country: None (occurrence: None)
  Receive Date: 20090722
  Receipt Date: 20090722
  Transmission Date: 20100115
  Serious: No
  Sender: FDA-Public Use
  Company Number: None

PATIENT
  Age: 35 Year
  Sex: Male
  Weight: 79.4 kg

DRUGS (1)
  1. RISPERIDONE [Suspect]
     Indication: HALLUCINATION, AUDITORY
     Dosage: 2 MG EVERY DAY PO
     Route: 048
     Dates: start: 20090619, end: 20090621

REACTIONS (1)
  - SWOLLEN TONGUE [None]
